FAERS Safety Report 19651359 (Version 4)
Quarter: 2021Q3

REPORT INFORMATION
  Report Type: Report from Study
  Country: US (occurrence: US)
  Receive Date: 20210803
  Receipt Date: 20210825
  Transmission Date: 20211014
  Serious: Yes (Other)
  Sender: FDA-Public Use
  Company Number: US-SUNOVION-2021SUN002715

PATIENT
  Age: 59 Year
  Sex: Male
  Weight: 2.45 kg

DRUGS (8)
  1. KYNMOBI [Suspect]
     Active Substance: APOMORPHINE HYDROCHLORIDE
     Indication: PARKINSON^S DISEASE
     Dosage: 25 MG
     Route: 060
     Dates: start: 20210728
  2. KYNMOBI [Suspect]
     Active Substance: APOMORPHINE HYDROCHLORIDE
     Dosage: 20 MG
     Route: 060
     Dates: start: 20210712
  3. SYNTHROID [Concomitant]
     Active Substance: LEVOTHYROXINE SODIUM
     Dosage: 1 UNK, QD
     Route: 048
     Dates: start: 20160912
  4. KYNMOBI [Suspect]
     Active Substance: APOMORPHINE HYDROCHLORIDE
     Dosage: 25 MG
     Route: 060
     Dates: start: 20210621
  5. STALEVO [Concomitant]
     Active Substance: CARBIDOPA\ENTACAPONE\LEVODOPA
     Dosage: 1 TABL 6AM,10AM,2PM,5PM,10PM, AND 2AM
     Route: 048
     Dates: start: 20210608
  6. MAXIMUM D3 [Concomitant]
     Active Substance: CHOLECALCIFEROL
     Dosage: 1 UNK, QW
     Dates: start: 20160912
  7. KYNMOBI [Suspect]
     Active Substance: APOMORPHINE HYDROCHLORIDE
     Dosage: INITIATE 10MG WITH DOSING OBSERVATION INCREASE DOSE MONITORED TITRATION WITH PATIENT^S TOLERANCE OF
     Route: 060
     Dates: start: 20210621
  8. BENAZEPRIL HYDROCHLOROTHIAZIDE EG [Concomitant]
     Dosage: 1 UNK, QD
     Dates: start: 20160912

REACTIONS (12)
  - Feeling abnormal [Recovered/Resolved]
  - Dizziness [Recovered/Resolved]
  - Feeling cold [Recovered/Resolved]
  - Head injury [Recovered/Resolved]
  - Fall [Recovered/Resolved]
  - Arthralgia [Recovered/Resolved]
  - Hyperhidrosis [Recovered/Resolved]
  - Syncope [Recovered/Resolved]
  - Memory impairment [Recovered/Resolved]
  - Nausea [Recovered/Resolved]
  - Loss of consciousness [Recovered/Resolved]
  - Joint injury [Recovered/Resolved]

NARRATIVE: CASE EVENT DATE: 20210712
